FAERS Safety Report 7745922-9 (Version None)
Quarter: 2011Q3

REPORT INFORMATION
  Report Type: 
  Country: None (occurrence: None)
  Receive Date: 20110913
  Receipt Date: 20110909
  Transmission Date: 20111222
  Serious: Yes (Other)
  Sender: FDA-Public Use
  Company Number: US-PFIZER INC-2011212509

PATIENT
  Sex: Female
  Weight: 68.027 kg

DRUGS (2)
  1. LISINOPRIL [Concomitant]
     Indication: HYPERTENSION
     Dosage: 30 MG, DAILY
  2. TOVIAZ [Suspect]
     Indication: POLLAKIURIA
     Dosage: 8 MG, DAILY
     Route: 048
     Dates: start: 20110908

REACTIONS (2)
  - URINARY RETENTION [None]
  - INCORRECT DOSE ADMINISTERED [None]
